FAERS Safety Report 8864270 (Version 1)
Quarter: 2012Q4

REPORT INFORMATION
  Report Type: 
  Country: US (occurrence: US)
  Receive Date: 20121024
  Receipt Date: 20121024
  Transmission Date: 20130627
  Serious: No
  Sender: FDA-Public Use
  Company Number: US-AMGEN-USASP2011066601

PATIENT
  Sex: Female

DRUGS (9)
  1. ENBREL [Suspect]
     Indication: PRODUCT USED FOR UNKNOWN INDICATION
     Dosage: 50 mg, qwk
     Route: 058
  2. ATENOLOL [Concomitant]
     Dosage: 50 mg, UNK
  3. CLONAZEPAM [Concomitant]
     Dosage: 0.5 mg, UNK
  4. OMEPRAZOLE [Concomitant]
     Dosage: 40 mg, UNK
  5. ETODOLAC [Concomitant]
     Dosage: 300 mg, UNK
  6. PROMETHAZINE [Concomitant]
     Dosage: 25 mg, UNK
  7. FOLIC ACID [Concomitant]
     Dosage: 1 mg, UNK
  8. HYDROCODONE/APAP [Concomitant]
  9. LOSARTAN [Concomitant]
     Dosage: 50 mg, UNK

REACTIONS (2)
  - Gastric ulcer [Unknown]
  - Headache [Unknown]
